FAERS Safety Report 20374807 (Version 2)
Quarter: 2022Q2

REPORT INFORMATION
  Report Type: Report from Study
  Country: GB (occurrence: GB)
  Receive Date: 20220125
  Receipt Date: 20220405
  Transmission Date: 20220720
  Serious: Yes (Hospitalization, Other)
  Sender: FDA-Public Use
  Company Number: GB-GLAXOSMITHKLINE-GB2022EME010723

PATIENT
  Age: 48 Year
  Sex: Female

DRUGS (5)
  1. NIRAPARIB [Suspect]
     Active Substance: NIRAPARIB
     Indication: Neoplasm malignant
     Dosage: 200 MG, QD
     Dates: start: 20210629
  2. NIRAPARIB [Suspect]
     Active Substance: NIRAPARIB
     Dosage: 100 MG, QD
     Dates: end: 20220107
  3. CYCLIZINE [Concomitant]
     Active Substance: CYCLIZINE
     Indication: Product used for unknown indication
     Dosage: 50 MG (T.D.S)
  4. COCODAMOL [Concomitant]
     Active Substance: ACETAMINOPHEN\CODEINE PHOSPHATE
     Indication: Product used for unknown indication
     Dosage: 30/500 MG (1-2 TOD)
  5. DOCUSATE SODIUM [Concomitant]
     Active Substance: DOCUSATE SODIUM
     Indication: Product used for unknown indication
     Dosage: 100 MG

REACTIONS (8)
  - Thrombocytopenia [Recovered/Resolved with Sequelae]
  - Hepatic cancer [Not Recovered/Not Resolved]
  - Malignant mesenteric neoplasm [Not Recovered/Not Resolved]
  - Neutropenia [Recovered/Resolved]
  - Malignant neoplasm progression [Unknown]
  - Ovarian cancer recurrent [Unknown]
  - Metastases to liver [Unknown]
  - Drug ineffective [Not Recovered/Not Resolved]

NARRATIVE: CASE EVENT DATE: 20210721
